FAERS Safety Report 4873918-3 (Version None)
Quarter: 2006Q1

REPORT INFORMATION
  Report Type: 
  Country: None (occurrence: None)
  Receive Date: 20060106
  Receipt Date: 20051116
  Transmission Date: 20060701
  Serious: Yes (Death)
  Sender: FDA-Public Use
  Company Number: PHNR2005AU01623

PATIENT
  Age: 32 Year
  Sex: Female

DRUGS (3)
  1. TEGRETOL [Suspect]
     Indication: CONVULSION
     Dates: start: 20050309
  2. ANAESTHETICS, LOCAL [Suspect]
     Dates: start: 20050301
  3. ANALGESICS [Suspect]

REACTIONS (9)
  - BRAIN OEDEMA [None]
  - HEADACHE [None]
  - HYPONATRAEMIA [None]
  - HYPOXIC ENCEPHALOPATHY [None]
  - INAPPROPRIATE ANTIDIURETIC HORMONE SECRETION [None]
  - INTRACRANIAL PRESSURE INCREASED [None]
  - POSTPARTUM HYPOPITUITARISM [None]
  - SYNCOPE [None]
  - VENTRICULAR TACHYCARDIA [None]
